FAERS Safety Report 7449467-5 (Version None)
Quarter: 2011Q2

REPORT INFORMATION
  Report Type: 
  Country: None (occurrence: None)
  Receive Date: 20110502
  Receipt Date: 20110330
  Transmission Date: 20111010
  Serious: Yes (Hospitalization, Other)
  Sender: FDA-Public Use
  Company Number: US-BAYER-201033560NA

PATIENT
  Age: 25 Year
  Sex: Female
  Weight: 98.413 kg

DRUGS (4)
  1. YASMIN [Suspect]
     Indication: ACNE
  2. DROSPIRENONE AND ETHINYL ESTRADIOL [Suspect]
     Indication: ACNE
  3. YAZ [Suspect]
     Indication: ACNE
  4. SEPTRA [Concomitant]
     Indication: URINARY TRACT INFECTION

REACTIONS (10)
  - BLOOD URINE PRESENT [None]
  - ANAEMIA [None]
  - VENOUS THROMBOSIS [None]
  - MESENTERIC VEIN THROMBOSIS [None]
  - ABDOMINAL PAIN [None]
  - VOMITING [None]
  - NAUSEA [None]
  - INTESTINAL ISCHAEMIA [None]
  - RENAL VEIN THROMBOSIS [None]
  - INJURY [None]
